FAERS Safety Report 12010316 (Version 3)
Quarter: 2016Q1

REPORT INFORMATION
  Report Type: Spontaneous
  Country: AU (occurrence: AU)
  Receive Date: 20160205
  Receipt Date: 20160308
  Transmission Date: 20160526
  Serious: Yes (Other)
  Sender: FDA-Public Use
  Company Number: AU-PFIZER INC-2016057719

PATIENT
  Age: 52 Year
  Sex: Male

DRUGS (2)
  1. MARIJUANA [Concomitant]
     Active Substance: CANNABIS SATIVA SUBSP. INDICA TOP
     Dosage: UNK
  2. CHAMPIX [Suspect]
     Active Substance: VARENICLINE TARTRATE
     Indication: SMOKING CESSATION THERAPY
     Dosage: 0.5 MG, UNK

REACTIONS (11)
  - Fear [Unknown]
  - Screaming [Recovered/Resolved]
  - Verbal abuse [Recovered/Resolved]
  - Paranoia [Recovered/Resolved]
  - Anger [Recovered/Resolved]
  - Homicidal ideation [Recovered/Resolved]
  - Suicidal ideation [Recovered/Resolved]
  - Emotional disorder [Recovered/Resolved]
  - Amnesia [Unknown]
  - Depression [Unknown]
  - Dysgeusia [Unknown]

NARRATIVE: CASE EVENT DATE: 201601
